FAERS Safety Report 7221084-1 (Version None)
Quarter: 2011Q1

REPORT INFORMATION
  Report Type: 
  Country: None (occurrence: None)
  Receive Date: 20110112
  Receipt Date: 20110105
  Transmission Date: 20110831
  Serious: No
  Sender: FDA-Public Use
  Company Number: US-PFIZER INC-2011003106

PATIENT
  Sex: Female
  Weight: 134 kg

DRUGS (10)
  1. VANCOMYCIN [Suspect]
     Indication: URINARY TRACT INFECTION
     Dosage: UNK
     Route: 042
     Dates: start: 20101214, end: 20101228
  2. ZYVOX [Suspect]
     Indication: RENAL CYST INFECTION
     Dosage: 600 MG, 2X/DAY
     Route: 048
     Dates: start: 20101228, end: 20110102
  3. ZYVOX [Suspect]
  4. VANCOMYCIN [Suspect]
     Indication: RENAL CYST INFECTION
  5. PLAVIX [Concomitant]
     Indication: SYSTEMIC LUPUS ERYTHEMATOSUS
     Dosage: 75 MG, 1X/DAY
     Route: 048
  6. NEBIVOLOL [Concomitant]
     Indication: HYPERTENSION
     Dosage: 10 MG, 1X/DAY
     Route: 048
  7. CALCIUM [Concomitant]
     Dosage: 2000 MG, 2X/DAY
     Route: 048
  8. PREDNISONE [Concomitant]
     Indication: SYSTEMIC LUPUS ERYTHEMATOSUS
     Dosage: 3 MG, 1X/DAY
     Route: 048
  9. BENICAR [Concomitant]
     Indication: HYPERTENSION
     Dosage: 40 MG, 1X/DAY
     Route: 048
  10. VITAMIN D [Concomitant]
     Dosage: 600 IU, 2X/DAY
     Route: 048

REACTIONS (6)
  - BURNING SENSATION [None]
  - PRURITUS [None]
  - DIARRHOEA [None]
  - RASH GENERALISED [None]
  - RASH [None]
  - BLOOD PRESSURE INCREASED [None]
